FAERS Safety Report 21242418 (Version 2)
Quarter: 2022Q3

REPORT INFORMATION
  Report Type: Spontaneous
  Country: CZ (occurrence: CZ)
  Receive Date: 20220823
  Receipt Date: 20220825
  Transmission Date: 20221026
  Serious: Yes (Other)
  Sender: FDA-Public Use
  Company Number: CZ-CELLTRION INC.-2022CZ013446

PATIENT

DRUGS (9)
  1. RITUXIMAB [Suspect]
     Active Substance: RITUXIMAB
     Indication: Chronic lymphocytic leukaemia
     Dosage: THIRD LINE TREATMENT (6 ADMINISTRATIONS)
     Route: 042
     Dates: start: 20210216
  2. RITUXIMAB [Suspect]
     Active Substance: RITUXIMAB
     Dosage: THIRD LINE TREATMENT (6 ADMINISTRATIONS)
     Route: 058
     Dates: start: 20210216
  3. RITUXIMAB [Suspect]
     Active Substance: RITUXIMAB
     Dosage: THIRD LINE TREATMENT (6 ADMINISTRATIONS)
     Route: 058
     Dates: start: 20210216
  4. RITUXIMAB [Suspect]
     Active Substance: RITUXIMAB
     Dosage: THIRD LINE TREATMENT (6 ADMINISTRATIONS)
     Route: 058
     Dates: start: 20210216
  5. RITUXIMAB [Suspect]
     Active Substance: RITUXIMAB
     Dosage: THIRD LINE TREATMENT (6 ADMINISTRATIONS)
     Route: 058
     Dates: start: 20210216
  6. RITUXIMAB [Suspect]
     Active Substance: RITUXIMAB
     Dosage: THIRD LINE TREATMENT (6 ADMINISTRATIONS)
     Route: 058
     Dates: start: 20210216
  7. VENETOCLAX [Suspect]
     Active Substance: VENETOCLAX
     Indication: Chronic lymphocytic leukaemia
     Dosage: THIRD LINE TREATMENT (RAMP-UP TO 400 MG/24 MONTHS)
     Dates: start: 20210216
  8. ALLOPURINOL [Concomitant]
     Active Substance: ALLOPURINOL
  9. COVID-19 VACCINE NOS [Concomitant]
     Active Substance: COVID-19 VACCINE NOS

REACTIONS (7)
  - Clostridium difficile infection [Unknown]
  - Neutropenia [Unknown]
  - Hyperkalaemia [Unknown]
  - Rotavirus test positive [Unknown]
  - Hyperphosphataemia [Unknown]
  - Respiratory tract infection [Unknown]
  - Hyperuricaemia [Unknown]

NARRATIVE: CASE EVENT DATE: 20210401
